FAERS Safety Report 17945472 (Version 1)
Quarter: 2020Q2

REPORT INFORMATION
  Report Type: Spontaneous
  Country: JP (occurrence: JP)
  Receive Date: 20200625
  Receipt Date: 20200625
  Transmission Date: 20200714
  Serious: Yes (Other)
  Sender: FDA-Public Use
  Company Number: JP-GLAXOSMITHKLINE-JP2020100917

PATIENT
  Age: 77 Year
  Sex: Male

DRUGS (1)
  1. AVOLVE [Suspect]
     Active Substance: DUTASTERIDE
     Dosage: UNK
     Route: 048
     Dates: start: 2009

REACTIONS (3)
  - Aspermia [Unknown]
  - Semen volume decreased [Unknown]
  - Urogenital haemorrhage [Unknown]

NARRATIVE: CASE EVENT DATE: 2020
